FAERS Safety Report 4577055-7 (Version None)
Quarter: 2005Q1

REPORT INFORMATION
  Report Type: 
  Country: None (occurrence: None)
  Receive Date: 20050208
  Receipt Date: 20050127
  Transmission Date: 20050727
  Serious: Yes (Hospitalization, Other)
  Sender: FDA-Public Use
  Company Number: HQWYE949528JAN05

PATIENT
  Sex: Female

DRUGS (4)
  1. PREMPRO [Suspect]
     Dosage: ORAL
     Route: 048
     Dates: start: 19960701, end: 20020401
  2. MEDROXPROGESTERONE ACETATE (MEDROXYPROGESTERONE ACETATE, TABLET,) [Suspect]
     Dosage: 2.5 MG,  ORAL
     Route: 048
  3. PREMARIN [Suspect]
     Dosage: 0.625 MG , ORAL
     Route: 048
     Dates: start: 19950201, end: 19960701
  4. PROVERA [Suspect]
     Dosage: 2.5 MG, ORAL
     Route: 048

REACTIONS (5)
  - APPENDICECTOMY [None]
  - OVARIAN CANCER METASTATIC [None]
  - POST PROCEDURAL COMPLICATION [None]
  - RECURRENT CANCER [None]
  - WOUND COMPLICATION [None]
